FAERS Safety Report 25369395 (Version 1)
Quarter: 2025Q2

REPORT INFORMATION
  Report Type: Spontaneous
  Country: US (occurrence: None)
  Receive Date: 20250527
  Receipt Date: 20250527
  Transmission Date: 20250716
  Serious: Yes (unspecified)
  Sender: FDA-CTU
  Company Number: None

PATIENT
  Age: 64 Year
  Sex: Female
  Weight: 72 kg

DRUGS (11)
  1. CELESTONE [Suspect]
     Active Substance: BETAMETHASONE
     Dates: start: 20250401, end: 20250401
  2. CRESTOR [Concomitant]
     Active Substance: ROSUVASTATIN CALCIUM
  3. EZETEMIDE [Concomitant]
  4. ZYRTEC [Concomitant]
     Active Substance: CETIRIZINE HYDROCHLORIDE
  5. PEPCID [Concomitant]
     Active Substance: FAMOTIDINE
  6. VITAMINS [Concomitant]
     Active Substance: VITAMINS
  7. VITAMIN D/KW [Concomitant]
  8. VITAMIN C [Concomitant]
     Active Substance: ASCORBIC ACID
  9. HERBALS\TURMERIC [Concomitant]
     Active Substance: HERBALS\TURMERIC
  10. ALPHA LAPOIC ACID [Concomitant]
  11. AVMACOL MAGNESIUM [Concomitant]

REACTIONS (2)
  - Infection [None]
  - Cyst [None]

NARRATIVE: CASE EVENT DATE: 20250401
